FAERS Safety Report 8539142-8 (Version None)
Quarter: 2012Q3

REPORT INFORMATION
  Report Type: 
  Country: None (occurrence: None)
  Receive Date: 20120716
  Receipt Date: 20120706
  Transmission Date: 20120928
  Serious: Yes (Disabling)
  Sender: FDA-Public Use
  Company Number: DSA_58425_2012

PATIENT
  Age: 47 Year
  Sex: Female

DRUGS (20)
  1. SITAGLIPTIN [Concomitant]
  2. METRONIDAZOLE [Suspect]
     Indication: URINARY TRACT INFECTION
     Dosage: 400 MG, TID
     Dates: start: 20120607, end: 20120614
  3. INADINE [Concomitant]
  4. DIAZEPAM TAB [Concomitant]
  5. VENTOLIN [Concomitant]
  6. NOVOLOG MIX 70/30 [Concomitant]
  7. PROCHLORPERAZINE [Concomitant]
  8. ATENOLOL [Concomitant]
  9. FLUTICASONE PROPIONATE/SALMETEROL [Concomitant]
  10. WARFARIN SODIUM [Concomitant]
  11. EXENATIDE [Concomitant]
  12. MULTI-VITAMINS [Concomitant]
  13. TRAMADOL HYDROCHLORIDE [Concomitant]
  14. CYCLIZINE [Concomitant]
  15. AMITRIPTYLINE HCL [Concomitant]
  16. TRIMETHOPRIM [Concomitant]
  17. FLUCLOXACILLIN [Concomitant]
  18. TEMAZEPAM [Concomitant]
  19. ESOMEPRAZOLE [Concomitant]
  20. CODEINE PHOPSHATE [Concomitant]

REACTIONS (1)
  - ASTHMA [None]
